FAERS Safety Report 11197640 (Version 1)
Quarter: 2015Q2

REPORT INFORMATION
  Report Type: Spontaneous
  Country: US (occurrence: US)
  Receive Date: 20150617
  Receipt Date: 20150617
  Transmission Date: 20150821
  Serious: No
  Sender: FDA-Public Use
  Company Number: US-GLAXOSMITHKLINE-US2015083979

PATIENT
  Sex: Male

DRUGS (12)
  1. VITAMIN E [Concomitant]
     Active Substance: .ALPHA.-TOCOPHEROL
  2. MULTIVITAMIN [Concomitant]
     Active Substance: VITAMINS
  3. METOPROLOL [Concomitant]
     Active Substance: METOPROLOL
  4. ANORO ELLIPTA [Suspect]
     Active Substance: UMECLIDINIUM BROMIDE\VILANTEROL TRIFENATATE
     Indication: CHRONIC OBSTRUCTIVE PULMONARY DISEASE
     Dosage: 1 PUFF(S), BID
     Route: 055
     Dates: start: 20150601
  5. NIASPAN [Concomitant]
     Active Substance: NIACIN
  6. PLAVIX [Concomitant]
     Active Substance: CLOPIDOGREL BISULFATE
  7. LISINOPRIL. [Concomitant]
     Active Substance: LISINOPRIL
  8. ADVAIR DISKUS [Suspect]
     Active Substance: FLUTICASONE PROPIONATE\SALMETEROL XINAFOATE
     Indication: CHRONIC OBSTRUCTIVE PULMONARY DISEASE
     Dosage: 1 PUFF(S), BID
     Route: 055
     Dates: start: 2011, end: 201505
  9. SINGULAIR [Concomitant]
     Active Substance: MONTELUKAST SODIUM
  10. ASPIRIN (BABY) [Concomitant]
     Active Substance: ASPIRIN
  11. CRESTOR [Concomitant]
     Active Substance: ROSUVASTATIN CALCIUM
  12. ZETIA [Concomitant]
     Active Substance: EZETIMIBE

REACTIONS (2)
  - Dyspnoea [Recovering/Resolving]
  - Prescribed overdose [Not Recovered/Not Resolved]

NARRATIVE: CASE EVENT DATE: 2014
